FAERS Safety Report 4924263-9 (Version None)
Quarter: 2006Q1

REPORT INFORMATION
  Report Type: 
  Country: None (occurrence: None)
  Receive Date: 20060221
  Receipt Date: 20060209
  Transmission Date: 20060701
  Serious: Yes (Other)
  Sender: FDA-Public Use
  Company Number: 2006020075

PATIENT
  Sex: Male

DRUGS (8)
  1. CELEBREX [Suspect]
     Indication: ARTHRITIS
     Dosage: 200 MG (200 MG, 1 IN 1 D),
     Dates: start: 19990601
  2. CELEBREX [Suspect]
     Indication: PAIN
     Dosage: 200 MG (200 MG, 1 IN 1 D),
     Dates: start: 19990601
  3. ATENOLOL [Concomitant]
  4. MULTIVITAMIN [Concomitant]
  5. FLAXSEED OIL (LINSEED OIL) [Concomitant]
  6. SELENIUM (SELENIUM) [Concomitant]
  7. ASPIRIN [Concomitant]
  8. LEVOTHYROXINE SODIUM [Concomitant]

REACTIONS (2)
  - ARTERIAL OCCLUSIVE DISEASE [None]
  - FACTITIOUS DISORDER [None]
